FAERS Safety Report 8089944-X (Version None)
Quarter: 2012Q1

REPORT INFORMATION
  Report Type: 
  Country: None (occurrence: None)
  Receive Date: 20120129
  Receipt Date: 20110920
  Transmission Date: 20120608
  Serious: Yes (Hospitalization)
  Sender: FDA-Public Use
  Company Number: US-ABBOTT-11P-163-0857110-00

PATIENT
  Age: 58 Year
  Sex: Female

DRUGS (11)
  1. METFFORMIN HYDROCHLORIDE [Concomitant]
     Indication: DIABETES MELLITUS
  2. BLACK COHOSH [Concomitant]
     Indication: HOT FLUSH
  3. UNNAMED INHALER MEDICATION [Concomitant]
     Indication: SMOKING CESSATION THERAPY
     Dates: start: 20110901, end: 20110901
  4. HUMIRA [Suspect]
     Indication: PSORIATIC ARTHROPATHY
     Dates: start: 20090101, end: 20110824
  5. SIMVASTATIN [Concomitant]
     Indication: BLOOD CHOLESTEROL INCREASED
     Dosage: AT NIGHT
  6. HYDROCODONE BITARTRATE [Concomitant]
     Indication: PAIN
  7. COUMADIN [Concomitant]
     Indication: CEREBROVASCULAR ACCIDENT PROPHYLAXIS
     Dosage: AT NIGHT
     Dates: start: 20000101
  8. ASPIRIN [Concomitant]
     Indication: CEREBROVASCULAR ACCIDENT
  9. ASPIRIN [Concomitant]
     Indication: CARDIAC DISORDER
  10. IMIPRAMINE [Concomitant]
     Indication: PANIC ATTACK
     Dosage: AT NIGHT
  11. PREVACID [Concomitant]
     Indication: PROPHYLAXIS AGAINST GASTROINTESTINAL ULCER

REACTIONS (3)
  - ARTHRALGIA [None]
  - PROCEDURAL PAIN [None]
  - MICTURITION URGENCY [None]
